FAERS Safety Report 11131911 (Version 1)
Quarter: 2015Q2

REPORT INFORMATION
  Report Type: Spontaneous
  Country: CN (occurrence: None)
  Receive Date: 20150520
  Receipt Date: 20150520
  Transmission Date: 20150821
  Serious: Yes (Other)
  Sender: FDA-Public Use
  Company Number: CN-2015VAL000295

PATIENT
  Age: 62 Year
  Sex: Female

DRUGS (1)
  1. ROCALTROL [Suspect]
     Active Substance: CALCITRIOL
     Indication: OSTEOPOROSIS POSTMENOPAUSAL
     Route: 048

REACTIONS (2)
  - Off label use [None]
  - Nephrocalcinosis [None]

NARRATIVE: CASE EVENT DATE: 2014
